FAERS Safety Report 21745218 (Version 2)
Quarter: 2022Q4

REPORT INFORMATION
  Report Type: Report from Study
  Country: US (occurrence: None)
  Receive Date: 20221219
  Receipt Date: 20221226
  Transmission Date: 20230113
  Serious: No
  Sender: FDA-Public Use
  Company Number: US-Merck Healthcare KGaA-9370726

PATIENT
  Sex: Female

DRUGS (1)
  1. MAVENCLAD [Suspect]
     Active Substance: CLADRIBINE
     Indication: Multiple sclerosis
     Dosage: YEAR ONE MONTH ONE THERAPY
     Route: 048
     Dates: start: 20221126

REACTIONS (9)
  - Paranasal sinus hypersecretion [Recovered/Resolved]
  - Ear discomfort [Unknown]
  - Oropharyngeal pain [Recovered/Resolved]
  - Taste disorder [Recovering/Resolving]
  - Headache [Unknown]
  - Fatigue [Unknown]
  - Feeling cold [Unknown]
  - Arthralgia [Unknown]
  - Pain [Not Recovered/Not Resolved]
